FAERS Safety Report 8806480 (Version 1)
Quarter: 2012Q4

REPORT INFORMATION
  Report Type: Spontaneous
  Country: US (occurrence: None)
  Receive Date: 20120918
  Receipt Date: 20120918
  Transmission Date: 20130627
  Serious: No
  Sender: FDA-Public Use
  Company Number: None

PATIENT

DRUGS (2)
  1. CARDENE [Suspect]
     Dosage: 40 MG IN 200 ML (0.2 , BAG, 1 GALAXY SINGLE DOSE CONTAINER
     Route: 042
  2. NEXTERONE [Suspect]
     Dosage: /200ML (1.9 M, BAG, 1 GALAXY SINGLE DOSE CONTAINER
     Route: 042

REACTIONS (2)
  - Confusional state [None]
  - Incorrect dose administered [None]
